FAERS Safety Report 16048064 (Version 4)
Quarter: 2019Q1

REPORT INFORMATION
  Report Type: Report from Study
  Country: US (occurrence: US)
  Receive Date: 20190307
  Receipt Date: 20190326
  Transmission Date: 20190418
  Serious: Yes (Hospitalization, Other)
  Sender: FDA-Public Use
  Company Number: US-SHIRE-US201907445

PATIENT
  Age: 68 Year
  Sex: Male
  Weight: 40 kg

DRUGS (2)
  1. GATTEX [Suspect]
     Active Substance: TEDUGLUTIDE\WATER
     Dosage: 1.95 MILLIGRAM
     Route: 058
     Dates: start: 20170530
  2. GATTEX [Suspect]
     Active Substance: TEDUGLUTIDE\WATER
     Indication: SHORT-BOWEL SYNDROME
     Dosage: UNK, 1X/DAY:QD
     Route: 065
     Dates: start: 20170602

REACTIONS (5)
  - Cholecystitis [Recovering/Resolving]
  - Pain [Recovering/Resolving]
  - Intestinal ulcer [Unknown]
  - Gastrointestinal inflammation [Unknown]
  - Diarrhoea [Recovering/Resolving]

NARRATIVE: CASE EVENT DATE: 201902
